FAERS Safety Report 7307388-2 (Version None)
Quarter: 2011Q1

REPORT INFORMATION
  Report Type: 
  Country: None (occurrence: None)
  Receive Date: 20110223
  Receipt Date: 20110209
  Transmission Date: 20110831
  Serious: Yes (Hospitalization)
  Sender: FDA-Public Use
  Company Number: PHHY2011JP11999

PATIENT
  Sex: Male

DRUGS (10)
  1. METHYCOBAL [Concomitant]
     Dosage: 1.5 MG, UNK
     Route: 048
  2. BLOPRESS [Concomitant]
     Dosage: 12 MG
     Route: 048
  3. WARFARIN SODIUM [Concomitant]
     Dosage: 1.5 MG, UNK
     Route: 048
  4. ASPIRIN [Concomitant]
     Dosage: 100 MG, UNK
     Route: 048
  5. BLOPRESS [Concomitant]
     Dosage: 8 MG, UNK
     Route: 048
  6. PRONON [Concomitant]
     Dosage: 450 MG, UNK
     Route: 048
  7. ADALAT CC [Concomitant]
     Dosage: 20 MG, UNK
     Route: 048
  8. TASIGNA [Suspect]
     Indication: CHRONIC MYELOID LEUKAEMIA
     Dosage: 200 MG, DAILY
     Route: 048
     Dates: start: 20090709
  9. ADALAT CC [Concomitant]
     Dosage: 40 MG, UNK
     Route: 048
  10. WARFARIN SODIUM [Concomitant]
     Dosage: 1.25 MG, UNK
     Route: 048

REACTIONS (3)
  - HERPES ZOSTER [None]
  - BLISTER [None]
  - PAIN [None]
